FAERS Safety Report 6166989-8 (Version None)
Quarter: 2009Q2

REPORT INFORMATION
  Report Type: 
  Country: None (occurrence: None)
  Receive Date: 20090423
  Receipt Date: 20090423
  Transmission Date: 20091009
  Serious: Yes (Other)
  Sender: FDA-Public Use
  Company Number: None

PATIENT
  Age: 48 Year
  Sex: Male
  Weight: 90.7194 kg

DRUGS (1)
  1. CIPROFLOXACIN HCL [Suspect]
     Indication: URINARY TRACT INFECTION
     Dosage: 500MG TWICW DAILY PO
     Route: 048
     Dates: start: 20060212, end: 20060222

REACTIONS (9)
  - ARTHRALGIA [None]
  - ARTHROPATHY [None]
  - BACK PAIN [None]
  - DYSSTASIA [None]
  - EYE PAIN [None]
  - JOINT STIFFNESS [None]
  - PAIN IN EXTREMITY [None]
  - SLEEP DISORDER [None]
  - TINNITUS [None]
